FAERS Safety Report 6135755-1 (Version None)
Quarter: 2009Q1

REPORT INFORMATION
  Report Type: 
  Country: None (occurrence: None)
  Receive Date: 20090327
  Receipt Date: 20090320
  Transmission Date: 20090719
  Serious: Yes (Hospitalization, Other)
  Sender: FDA-Public Use
  Company Number: PHHO2009UA02362

PATIENT
  Age: 65 Year
  Sex: Male

DRUGS (1)
  1. FORADIL T28242+INHAL [Suspect]
     Indication: CHRONIC OBSTRUCTIVE PULMONARY DISEASE
     Dosage: DOUBLE BLIND TREATMENT PHASE
     Dates: start: 20081014, end: 20090209

REACTIONS (1)
  - GLAUCOMA [None]
